FAERS Safety Report 6468533-4 (Version None)
Quarter: 2009Q4

REPORT INFORMATION
  Report Type: 
  Country: None (occurrence: None)
  Receive Date: 20091203
  Receipt Date: 20091126
  Transmission Date: 20100525
  Serious: Yes (Hospitalization)
  Sender: FDA-Public Use
  Company Number: FR-JNJFOC-20091107474

PATIENT
  Age: 77 Year
  Sex: Male

DRUGS (3)
  1. TAVANIC [Suspect]
     Indication: PNEUMONIA
     Route: 048
     Dates: start: 20090822, end: 20090831
  2. AMOXICILLIN AND CLAVULANATE POTASSIUM [Suspect]
     Indication: PNEUMONIA
     Route: 065
     Dates: start: 20090801, end: 20090801
  3. CEFTRIAXONE [Suspect]
     Indication: PNEUMONIA
     Route: 048
     Dates: start: 20090822, end: 20090831

REACTIONS (3)
  - CHOLESTASIS [None]
  - CYTOLYTIC HEPATITIS [None]
  - MIXED LIVER INJURY [None]
